FAERS Safety Report 8798013 (Version 1)
Quarter: 2012Q4

REPORT INFORMATION
  Report Type: 
  Country: US (occurrence: US)
  Receive Date: 20120920
  Receipt Date: 20120920
  Transmission Date: 20130627
  Serious: No
  Sender: FDA-Public Use
  Company Number: US-009507513-1209USA003054

PATIENT
  Sex: Female

DRUGS (2)
  1. COSOPT [Suspect]
     Dosage: 2 times daily in each eye
     Route: 047
     Dates: end: 201208
  2. NEVANAC [Concomitant]
     Dosage: two times daily in each eye
     Route: 047

REACTIONS (3)
  - Product quality issue [Unknown]
  - Vision blurred [Unknown]
  - Drug dose omission [Unknown]
